FAERS Safety Report 5645692-4 (Version None)
Quarter: 2008Q1

REPORT INFORMATION
  Report Type: 
  Country: None (occurrence: None)
  Receive Date: 20080229
  Receipt Date: 20080107
  Transmission Date: 20080703
  Serious: Yes (Death)
  Sender: FDA-Public Use
  Company Number: US-BOEHRINGER INGELHEIM GMBH, GERMANY-2007-BP-21909BP

PATIENT
  Sex: Female

DRUGS (29)
  1. MIRAPEX [Suspect]
     Indication: RESTLESS LEGS SYNDROME
     Route: 048
     Dates: start: 20020808, end: 20051101
  2. VOLTAREN [Concomitant]
  3. METRONIDAZOLE HCL [Concomitant]
  4. LOTEMAX [Concomitant]
  5. CYCLOBENZAPRINE HCL [Concomitant]
  6. LOVENOX [Concomitant]
  7. ALPRAZOLAM [Concomitant]
  8. DEXAMETHASONE TAB [Concomitant]
  9. PROCHLORPERAZINE [Concomitant]
  10. LEVAQUIN [Concomitant]
  11. FLUCONAZOLE [Concomitant]
  12. MIRACLE MOUTHWASH [Concomitant]
  13. NYSTATIN [Concomitant]
  14. LUNESTA [Concomitant]
  15. ACETAMINOPHEN AND HYDROCODONE BITARTRATE [Concomitant]
  16. NITROFURANTOIN [Concomitant]
  17. ESTRACE [Concomitant]
  18. DIAZEPAM [Concomitant]
  19. PAXIL [Concomitant]
  20. VIOXX [Concomitant]
  21. TRICOR [Concomitant]
  22. OMEPRAZOLE [Concomitant]
  23. MOBIC [Concomitant]
  24. ZINC OXIDE [Concomitant]
  25. CIPRO [Concomitant]
  26. FLAGYL [Concomitant]
  27. NEURONTIN [Concomitant]
  28. NASACORT [Concomitant]
  29. CHEMOTHERAPY [Concomitant]
     Dates: start: 20050801

REACTIONS (7)
  - DEATH [None]
  - DEPRESSION [None]
  - EMOTIONAL DISTRESS [None]
  - IMPULSE-CONTROL DISORDER [None]
  - OBSESSIVE-COMPULSIVE DISORDER [None]
  - PAIN [None]
  - PATHOLOGICAL GAMBLING [None]
